FAERS Safety Report 10533701 (Version 2)
Quarter: 2014Q4

REPORT INFORMATION
  Report Type: Spontaneous
  Country: JP (occurrence: JP)
  Receive Date: 20141022
  Receipt Date: 20141031
  Transmission Date: 20150529
  Serious: Yes (Death)
  Sender: FDA-Public Use
  Company Number: JP-JNJFOC-20141009944

PATIENT
  Age: 66 Year
  Sex: Male

DRUGS (2)
  1. ZYTIGA [Suspect]
     Active Substance: ABIRATERONE ACETATE
     Indication: PROSTATE CANCER
     Route: 048
     Dates: start: 20140909, end: 20140927
  2. LEUPLIN [Concomitant]
     Active Substance: LEUPROLIDE ACETATE
     Route: 058

REACTIONS (2)
  - Drug ineffective [Unknown]
  - Prostate cancer [Fatal]

NARRATIVE: CASE EVENT DATE: 201409
